FAERS Safety Report 21723304 (Version 3)
Quarter: 2023Q1

REPORT INFORMATION
  Report Type: Spontaneous
  Country: JP (occurrence: JP)
  Receive Date: 20221213
  Receipt Date: 20230316
  Transmission Date: 20230417
  Serious: Yes (Hospitalization)
  Sender: FDA-Public Use
  Company Number: JP-ONO-2022JP032970

PATIENT
  Age: 74 Year
  Sex: Female

DRUGS (1)
  1. OPDIVO [Suspect]
     Active Substance: NIVOLUMAB
     Indication: Metastatic renal cell carcinoma
     Dosage: UNK
     Route: 041

REACTIONS (1)
  - Coagulation factor deficiency [Recovering/Resolving]
